FAERS Safety Report 24156769 (Version 1)
Quarter: 2024Q3

REPORT INFORMATION
  Report Type: Spontaneous
  Country: US (occurrence: US)
  Receive Date: 20240731
  Receipt Date: 20240731
  Transmission Date: 20241016
  Serious: Yes (Hospitalization)
  Sender: INTRA-CELLULAR THERAPIES
  Company Number: US-INTRA-CELLULAR THERAPIES, INC.-2024ICT01182

PATIENT
  Age: 7 Decade
  Sex: Male

DRUGS (4)
  1. CAPLYTA [Suspect]
     Active Substance: LUMATEPERONE
     Indication: Depression
     Dosage: 42 MG
  2. BUPROPION [Suspect]
     Active Substance: BUPROPION
     Dosage: 150 MG
  3. BUPROPION [Suspect]
     Active Substance: BUPROPION
     Dosage: 400 MG
  4. GABAPENTIN [Concomitant]
     Active Substance: GABAPENTIN

REACTIONS (3)
  - Feeling abnormal [Recovered/Resolved]
  - Parkinsonism [Recovered/Resolved]
  - Off label use [Recovered/Resolved]
